FAERS Safety Report 14832057 (Version 1)
Quarter: 2018Q2

REPORT INFORMATION
  Report Type: Report from Study
  Country: IT (occurrence: IT)
  Receive Date: 20180501
  Receipt Date: 20180501
  Transmission Date: 20180711
  Serious: Yes (Hospitalization, Other)
  Sender: FDA-Public Use
  Company Number: IT-BAYER-2018-079509

PATIENT
  Age: 58 Year
  Sex: Male

DRUGS (5)
  1. GLIBENCLAMIDE [Interacting]
     Active Substance: GLYBURIDE
     Dosage: UNK
  2. SPIRONOLACTONE. [Interacting]
     Active Substance: SPIRONOLACTONE
     Dosage: UNK
  3. ACETYLSALICYLIC ACID [Suspect]
     Active Substance: ASPIRIN
     Dosage: UNK
  4. INFLUENZA VIRUS VACCINE [Interacting]
     Active Substance: INFLUENZA VIRUS VACCINE
     Dosage: UNK
  5. SIMVASTATIN. [Interacting]
     Active Substance: SIMVASTATIN
     Dosage: UNK

REACTIONS (20)
  - Dehydration [None]
  - Myalgia [None]
  - Areflexia [None]
  - Back pain [None]
  - Localised oedema [None]
  - Scrotal oedema [None]
  - Dysuria [None]
  - Hepatic pain [None]
  - Pain in extremity [None]
  - Pulmonary congestion [None]
  - Gait disturbance [None]
  - Rhabdomyolysis [None]
  - Acute kidney injury [None]
  - Platelet count normal [None]
  - Haemodialysis [None]
  - Oliguria [None]
  - Drug interaction [None]
  - Hepatomegaly [None]
  - Oedema peripheral [None]
  - Quadriparesis [None]
